FAERS Safety Report 18086822 (Version 4)
Quarter: 2020Q3

REPORT INFORMATION
  Report Type: Spontaneous
  Country: US (occurrence: US)
  Receive Date: 20200729
  Receipt Date: 20200921
  Transmission Date: 20201103
  Serious: No
  Sender: FDA-Public Use
  Company Number: US-PFIZER INC-2020288162

PATIENT
  Age: 61 Year
  Sex: Female

DRUGS (3)
  1. IBRANCE [Suspect]
     Active Substance: PALBOCICLIB
     Dosage: UNK
     Route: 048
     Dates: start: 20200723, end: 2020
  2. IBRANCE [Suspect]
     Active Substance: PALBOCICLIB
     Dosage: 125 MG
     Route: 048
     Dates: start: 20200710, end: 202007
  3. IBRANCE [Suspect]
     Active Substance: PALBOCICLIB
     Dosage: 125 MG
     Dates: start: 20200831

REACTIONS (12)
  - Amnesia [Unknown]
  - Feeling abnormal [Unknown]
  - Vomiting [Unknown]
  - Dyspnoea exertional [Unknown]
  - Constipation [Unknown]
  - Swelling face [Unknown]
  - Haemoptysis [Unknown]
  - Abdominal distension [Unknown]
  - Fatigue [Unknown]
  - Weight increased [Unknown]
  - Decreased appetite [Unknown]
  - Memory impairment [Unknown]

NARRATIVE: CASE EVENT DATE: 2020
